FAERS Safety Report 9691599 (Version 2)
Quarter: 2013Q4

REPORT INFORMATION
  Report Type: Spontaneous
  Country: US (occurrence: US)
  Receive Date: 20131115
  Receipt Date: 20131122
  Transmission Date: 20140711
  Serious: Yes (Other)
  Sender: FDA-Public Use
  Company Number: US-009507513-1311USA005456

PATIENT
  Age: 31 Year
  Sex: Female

DRUGS (9)
  1. SINGULAIR [Suspect]
     Indication: ASTHMA
     Dosage: 10.4 MG, 1 TIME DAILY
     Route: 048
  2. SINGULAIR [Suspect]
     Indication: SEASONAL ALLERGY
  3. ALBUTEROL [Concomitant]
  4. AMOXICILLIN (+) CLAVULANATE POTASSIUM [Concomitant]
  5. ASTEPRO [Concomitant]
  6. ZYRTEC [Concomitant]
  7. BEYAZ [Concomitant]
  8. NASONEX [Concomitant]
  9. ALEVE [Concomitant]

REACTIONS (5)
  - Aphasia [Unknown]
  - Dyspnoea [Unknown]
  - Insomnia [Unknown]
  - Oropharyngeal pain [Unknown]
  - Pharyngeal oedema [Unknown]
